FAERS Safety Report 21852797 (Version 1)
Quarter: 2023Q1

REPORT INFORMATION
  Report Type: Spontaneous
  Country: US (occurrence: None)
  Receive Date: 20230111
  Receipt Date: 20230111
  Transmission Date: 20230418
  Serious: No
  Sender: FDA-Public Use
  Company Number: None

PATIENT
  Age: 58 Year
  Sex: Female
  Weight: 52.62 kg

DRUGS (8)
  1. PILOCARPINE [Suspect]
     Active Substance: PILOCARPINE
     Indication: Dry mouth
     Dosage: OTHER QUANTITY : TAKE 3 TIMES A DAY;?FREQUENCY : 3 TIMES A DAY;?
     Route: 048
     Dates: start: 20230102, end: 20230102
  2. MYOBLOC [Suspect]
     Active Substance: RIMABOTULINUMTOXINB
  3. SIMVASTATIN [Concomitant]
     Active Substance: SIMVASTATIN
  4. FERROUS SULFATE [Concomitant]
     Active Substance: FERROUS SULFATE
  5. AMITRIPTYLINE [Concomitant]
     Active Substance: AMITRIPTYLINE
  6. BAYER ASPIRIN [Concomitant]
     Active Substance: ASPIRIN
  7. ESOMEPRAZOLE MAGN [Concomitant]
  8. MIDODRINE [Concomitant]
     Active Substance: MIDODRINE

REACTIONS (5)
  - Blood pressure increased [None]
  - Hyperhidrosis [None]
  - Dizziness [None]
  - Therapy cessation [None]
  - Dysphagia [None]

NARRATIVE: CASE EVENT DATE: 20230102
